FAERS Safety Report 6999333-4 (Version None)
Quarter: 2010Q3

REPORT INFORMATION
  Report Type: 
  Country: None (occurrence: None)
  Receive Date: 20100920
  Receipt Date: 20100311
  Transmission Date: 20110219
  Serious: Yes (Other)
  Sender: FDA-Public Use
  Company Number: US-ASTRAZENECA-2009UW20498

PATIENT
  Age: 52 Year
  Sex: Female

DRUGS (9)
  1. SEROQUEL [Suspect]
     Route: 048
     Dates: start: 20041217
  2. PROMETHAZINE [Concomitant]
     Dates: start: 20041013
  3. METOCLOPRAMIDE [Concomitant]
     Dates: start: 20040402
  4. CARDIZEM [Concomitant]
     Route: 048
     Dates: start: 20070823
  5. SINGULAIR [Concomitant]
     Route: 048
     Dates: start: 20070823
  6. ADIPEX [Concomitant]
     Route: 048
     Dates: start: 20070823
  7. LIBRAX [Concomitant]
     Dosage: 2.5/5 MG P.O. BID
     Route: 048
     Dates: start: 20070823
  8. CRESTOR [Concomitant]
     Route: 048
     Dates: start: 20070823
  9. METFORMIN [Concomitant]
     Route: 048
     Dates: start: 20070823

REACTIONS (3)
  - DIABETES MELLITUS [None]
  - KETOACIDOSIS [None]
  - PANCREATITIS [None]
